FAERS Safety Report 7206376-4 (Version None)
Quarter: 2011Q1

REPORT INFORMATION
  Report Type: 
  Country: None (occurrence: None)
  Receive Date: 20110103
  Receipt Date: 20110103
  Transmission Date: 20110831
  Serious: Yes (Other)
  Sender: FDA-Public Use
  Company Number: PHHO2007AT12548

PATIENT
  Sex: Male
  Weight: 77 kg

DRUGS (1)
  1. CERTICAN [Suspect]
     Indication: CONGENITAL CYSTIC KIDNEY DISEASE
     Dosage: UNK
     Route: 048
     Dates: start: 20070714, end: 20070727

REACTIONS (2)
  - APHTHOUS STOMATITIS [None]
  - HAEMORRHOIDAL HAEMORRHAGE [None]
